FAERS Safety Report 4545308-4 (Version None)
Quarter: 2005Q1

REPORT INFORMATION
  Report Type: 
  Country: None (occurrence: None)
  Receive Date: 20050103
  Receipt Date: 20041223
  Transmission Date: 20050727
  Serious: Yes (Hospitalization)
  Sender: FDA-Public Use
  Company Number: 2004-123774-NL

PATIENT
  Age: 55 Year
  Sex: Female

DRUGS (3)
  1. MIRTAZAPINE [Suspect]
     Dosage: 45 MG QD, ORAL
     Route: 048
     Dates: start: 20041007, end: 20041112
  2. BROMAZEPAM [Concomitant]
  3. CALCIUM PHOSPHATE [Concomitant]

REACTIONS (3)
  - PAIN [None]
  - PARAESTHESIA [None]
  - PRURITUS [None]
